FAERS Safety Report 21332403 (Version 1)
Quarter: 2022Q3

REPORT INFORMATION
  Report Type: Spontaneous
  Country: FR (occurrence: FR)
  Receive Date: 20220914
  Receipt Date: 20220914
  Transmission Date: 20221027
  Serious: Yes (Hospitalization)
  Sender: FDA-Public Use
  Company Number: None

PATIENT
  Age: 14 Year
  Sex: Male
  Weight: 50 kg

DRUGS (1)
  1. OMNITROPE [Suspect]
     Active Substance: SOMATROPIN
     Indication: Failure to thrive
     Dosage: (0.8MG/JAUGMENTE A 2.2MG/J)
     Route: 058
     Dates: start: 20161006

REACTIONS (1)
  - Osteochondritis [Recovering/Resolving]

NARRATIVE: CASE EVENT DATE: 20220223
